FAERS Safety Report 6468166-X (Version None)
Quarter: 2009Q4

REPORT INFORMATION
  Report Type: 
  Country: None (occurrence: None)
  Receive Date: 20091127
  Receipt Date: 20091116
  Transmission Date: 20100525
  Serious: Yes (Other)
  Sender: FDA-Public Use
  Company Number: 230234J09BRA

PATIENT
  Age: 36 Year
  Sex: Female

DRUGS (5)
  1. REBIF [Suspect]
     Indication: MULTIPLE SCLEROSIS
     Dosage: 44 MCG, 3 IN 1 WEEKS
     Dates: start: 20091002, end: 20090101
  2. REBIF [Suspect]
     Indication: MULTIPLE SCLEROSIS
     Dosage: 44 MCG, 3 IN 1 WEEKS
     Dates: start: 20090101, end: 20091111
  3. OTHER (ALL OTHER THERAPEUTIC PRODUCTS) [Concomitant]
  4. OLCADIL (CLOXAZOLAM) [Concomitant]
  5. TYLENOL [Concomitant]

REACTIONS (7)
  - BLINDNESS TRANSIENT [None]
  - BLINDNESS UNILATERAL [None]
  - CHILLS [None]
  - MUSCLE SPASMS [None]
  - MUSCULOSKELETAL STIFFNESS [None]
  - PYREXIA [None]
  - VISUAL ACUITY REDUCED [None]
